FAERS Safety Report 4681981-8 (Version None)
Quarter: 2005Q2

REPORT INFORMATION
  Report Type: 
  Country: None (occurrence: None)
  Receive Date: 20050602
  Receipt Date: 20050512
  Transmission Date: 20051028
  Serious: Yes (Hospitalization)
  Sender: FDA-Public Use
  Company Number: FR_050306009

PATIENT
  Sex: Female

DRUGS (5)
  1. FORTEO [Suspect]
     Indication: OSTEOPOROSIS
     Dosage: 20 UG DAY
     Dates: start: 20041125, end: 20041128
  2. PROPRANOLOL [Concomitant]
  3. CORTANCYL (PREDNISONE) [Concomitant]
  4. DICYNONE (ETAMSILATE) [Concomitant]
  5. MORPHINE [Concomitant]

REACTIONS (2)
  - HYPERSOMNIA [None]
  - SOMNOLENCE [None]
